FAERS Safety Report 12844968 (Version 1)
Quarter: 2016Q4

REPORT INFORMATION
  Report Type: Report from Study
  Country: US (occurrence: US)
  Receive Date: 20161013
  Receipt Date: 20161013
  Transmission Date: 20170207
  Serious: Yes (Other)
  Sender: FDA-Public Use
  Company Number: US-ASTELLAS-2015US004125

PATIENT
  Age: 62 Year
  Sex: Female

DRUGS (5)
  1. ERLOTINIB [Suspect]
     Active Substance: ERLOTINIB
     Indication: NON-SMALL CELL LUNG CANCER
     Dosage: 100 MG, OTHER (FIVE TIMES A WEEK)
     Route: 048
     Dates: start: 201407
  2. URSODIOL. [Concomitant]
     Active Substance: URSODIOL
     Indication: BILIARY CIRRHOSIS PRIMARY
     Route: 048
     Dates: start: 2001
  3. URSODIOL. [Concomitant]
     Active Substance: URSODIOL
     Route: 048
  4. CRESTOR [Concomitant]
     Active Substance: ROSUVASTATIN CALCIUM
     Indication: BLOOD CHOLESTEROL
     Route: 048
     Dates: start: 2001
  5. LUNESTA [Concomitant]
     Active Substance: ESZOPICLONE
     Indication: PRODUCT USED FOR UNKNOWN INDICATION
     Route: 048
     Dates: start: 2006

REACTIONS (12)
  - Rash [Not Recovered/Not Resolved]
  - Oesophageal ulcer [Not Recovered/Not Resolved]
  - Dental caries [Unknown]
  - Gastrointestinal disorder [Not Recovered/Not Resolved]
  - Macular hole [Not Recovered/Not Resolved]
  - Hiatus hernia [Not Recovered/Not Resolved]
  - Skin disorder [Recovered/Resolved]
  - Dermatitis acneiform [Recovered/Resolved]
  - Rash [Not Recovered/Not Resolved]
  - Dysphagia [Unknown]
  - Muscle strain [Unknown]
  - Dry skin [Not Recovered/Not Resolved]

NARRATIVE: CASE EVENT DATE: 201407
